FAERS Safety Report 15042884 (Version 3)
Quarter: 2018Q3

REPORT INFORMATION
  Report Type: Spontaneous
  Country: AT (occurrence: AT)
  Receive Date: 20180621
  Receipt Date: 20180817
  Transmission Date: 20181010
  Serious: Yes (Hospitalization, Other)
  Sender: FDA-Public Use
  Company Number: AT-ELI_LILLY_AND_COMPANY-AT201805003286

PATIENT
  Age: 36 Year
  Sex: Male
  Weight: 53 kg

DRUGS (13)
  1. QUETIAPIN [Suspect]
     Active Substance: QUETIAPINE
     Indication: AGITATED DEPRESSION
     Dosage: UNK UNK, UNKNOWN
     Route: 065
  2. PANTOPRAZOLE [Suspect]
     Active Substance: PANTOPRAZOLE
     Indication: PRODUCT USED FOR UNKNOWN INDICATION
     Dosage: UNK, UNKNOWN
     Route: 065
  3. PROTHIPENDYL [Suspect]
     Active Substance: PROTHIPENDYL
     Indication: PRODUCT USED FOR UNKNOWN INDICATION
     Dosage: UNK, UNKNOWN
     Route: 065
  4. RISPERIDONE. [Suspect]
     Active Substance: RISPERIDONE
     Indication: PRODUCT USED FOR UNKNOWN INDICATION
     Dosage: UNK, UNKNOWN
     Route: 065
  5. OLANZAPINE. [Suspect]
     Active Substance: OLANZAPINE
     Indication: AGITATED DEPRESSION
     Dosage: UNK, UNKNOWN
     Route: 065
  6. PREGABALIN. [Suspect]
     Active Substance: PREGABALIN
     Indication: AGITATED DEPRESSION
     Dosage: UNK UNK, UNKNOWN
     Route: 065
  7. ARIPIPRAZOLE. [Suspect]
     Active Substance: ARIPIPRAZOLE
     Indication: DEPRESSION
     Dosage: UNK, UNKNOWN
     Route: 065
  8. CLONAZEPAM. [Suspect]
     Active Substance: CLONAZEPAM
     Indication: AGITATED DEPRESSION
     Dosage: UNK UNK, UNKNOWN
     Route: 065
  9. MOCLOBEMIDE [Suspect]
     Active Substance: MOCLOBEMIDE
     Indication: PRODUCT USED FOR UNKNOWN INDICATION
     Dosage: UNK, UNKNOWN
     Route: 065
  10. SERTRALINE [Suspect]
     Active Substance: SERTRALINE HYDROCHLORIDE
     Indication: PRODUCT USED FOR UNKNOWN INDICATION
     Dosage: UNK, UNKNOWN
     Route: 065
  11. MIRTAZAPINE. [Suspect]
     Active Substance: MIRTAZAPINE
     Indication: DEPRESSION
     Dosage: UNK, UNKNOWN
     Route: 065
  12. TRAZODONE [Suspect]
     Active Substance: TRAZODONE HYDROCHLORIDE
     Indication: DEPRESSION
     Dosage: UNK, UNKNOWN
     Route: 065
  13. LAMOTRIGINE. [Suspect]
     Active Substance: LAMOTRIGINE
     Indication: PRODUCT USED FOR UNKNOWN INDICATION
     Dosage: UNK, UNKNOWN
     Route: 065

REACTIONS (23)
  - Persecutory delusion [Unknown]
  - Gastrointestinal disorder [Unknown]
  - Intentional product use issue [Unknown]
  - Nicotine dependence [Unknown]
  - Underweight [Unknown]
  - Depression [Unknown]
  - Delusion [Unknown]
  - Suicide attempt [Recovering/Resolving]
  - Headache [Unknown]
  - Obsessive-compulsive disorder [Unknown]
  - Fear of disease [Unknown]
  - Diarrhoea [Unknown]
  - Gastrointestinal pain [Unknown]
  - Gastritis [Unknown]
  - Psychotic symptom [Unknown]
  - Generalised anxiety disorder [Unknown]
  - Agitated depression [Not Recovered/Not Resolved]
  - Off label use [Unknown]
  - Borderline personality disorder [Unknown]
  - Illness anxiety disorder [Unknown]
  - Mental disorder [Not Recovered/Not Resolved]
  - Insomnia [Unknown]
  - Depersonalisation/derealisation disorder [Unknown]
